FAERS Safety Report 15984172 (Version 1)
Quarter: 2019Q1

REPORT INFORMATION
  Report Type: Spontaneous
  Country: US (occurrence: US)
  Receive Date: 20190219
  Receipt Date: 20190219
  Transmission Date: 20190418
  Serious: Yes (Life-Threatening, Hospitalization, Disabling, Other)
  Sender: FDA-Public Use
  Company Number: US-009507513-0504USA04403

PATIENT
  Sex: Female

DRUGS (2)
  1. VIOXX [Suspect]
     Active Substance: ROFECOXIB
     Indication: ARTHRITIS
     Dosage: 25 MG, QD
     Route: 048
     Dates: start: 1999, end: 20040930
  2. VIOXX [Suspect]
     Active Substance: ROFECOXIB
     Indication: PROCEDURAL PAIN

REACTIONS (18)
  - Confusional state [Unknown]
  - Inflammation [Unknown]
  - Urinary tract disorder [Unknown]
  - Abdominal pain [Unknown]
  - Anxiety [Unknown]
  - Gastric disorder [Unknown]
  - Constipation [Unknown]
  - Migraine [Not Recovered/Not Resolved]
  - Tremor [Not Recovered/Not Resolved]
  - Loss of consciousness [Not Recovered/Not Resolved]
  - Cerebrovascular accident [Not Recovered/Not Resolved]
  - Seizure [Not Recovered/Not Resolved]
  - Vision blurred [Unknown]
  - Dyspepsia [Unknown]
  - Hypertension [Unknown]
  - Dyspnoea [Unknown]
  - Dizziness [Not Recovered/Not Resolved]
  - Hypoaesthesia [Unknown]

NARRATIVE: CASE EVENT DATE: 2003
